FAERS Safety Report 9104213 (Version 1)
Quarter: 2013Q1

REPORT INFORMATION
  Report Type: Spontaneous
  Country: US (occurrence: US)
  Receive Date: 20130219
  Receipt Date: 20130219
  Transmission Date: 20140127
  Serious: Yes (Other)
  Sender: FDA-Public Use
  Company Number: PHEH2013US003974

PATIENT
  Sex: Female

DRUGS (2)
  1. RECLAST [Suspect]
  2. ACTONEL [Suspect]

REACTIONS (2)
  - Femur fracture [Unknown]
  - Emotional distress [Unknown]
